FAERS Safety Report 23273090 (Version 1)
Quarter: 2023Q4

REPORT INFORMATION
  Report Type: Report from Study
  Country: EG (occurrence: EG)
  Receive Date: 20231207
  Receipt Date: 20231207
  Transmission Date: 20240110
  Serious: Yes (Disabling)
  Sender: FDA-Public Use
  Company Number: EG-ABBVIE-5438814

PATIENT
  Age: 37 Year
  Sex: Male

DRUGS (2)
  1. HUMIRA [Suspect]
     Active Substance: ADALIMUMAB
     Indication: Rheumatoid arthritis
     Dosage: END DATE :2023
     Route: 058
     Dates: start: 202307
  2. ELIQUIS [Concomitant]
     Active Substance: APIXABAN
     Indication: Product used for unknown indication
     Dosage: 2.5

REACTIONS (10)
  - Insomnia [Recovered/Resolved]
  - Wound [Recovered/Resolved]
  - Arthralgia [Recovered/Resolved]
  - Acquired haemophilia [Recovered/Resolved]
  - Arthralgia [Recovered/Resolved]
  - Pain [Recovering/Resolving]
  - Injection site haemorrhage [Recovering/Resolving]
  - Injection site pain [Unknown]
  - Haemorrhage [Unknown]
  - Joint range of motion decreased [Recovered/Resolved]

NARRATIVE: CASE EVENT DATE: 20230101
